FAERS Safety Report 23804143 (Version 1)
Quarter: 2024Q2

REPORT INFORMATION
  Report Type: Spontaneous
  Country: US (occurrence: US)
  Receive Date: 20240501
  Receipt Date: 20240501
  Transmission Date: 20240715
  Serious: Yes (Other)
  Sender: FDA-Public Use
  Company Number: US-FreseniusKabi-FK202406776

PATIENT

DRUGS (1)
  1. HEPARIN SODIUM [Suspect]
     Active Substance: HEPARIN SODIUM
     Indication: Anticoagulant therapy
     Dosage: FORM OF ADMIN: INJECTION?ROUTE: INTRAVENOUS
     Route: 042

REACTIONS (3)
  - Coronary artery thrombosis [Unknown]
  - Coronary artery occlusion [Unknown]
  - Therapeutic product effect decreased [None]
